FAERS Safety Report 13200350 (Version 1)
Quarter: 2017Q1

REPORT INFORMATION
  Report Type: Spontaneous
  Country: RO (occurrence: RO)
  Receive Date: 20170208
  Receipt Date: 20170208
  Transmission Date: 20170428
  Serious: Yes (Hospitalization)
  Sender: FDA-Public Use
  Company Number: PHHY2017RO015939

PATIENT
  Age: 52 Year
  Sex: Female

DRUGS (6)
  1. BEVACIZUMAB [Suspect]
     Active Substance: BEVACIZUMAB
     Indication: RECTAL ADENOCARCINOMA
     Dosage: 7.5 MG/KG, QD
     Route: 065
  2. OXALIPLATIN. [Suspect]
     Active Substance: OXALIPLATIN
     Indication: RECTAL ADENOCARCINOMA
     Dosage: 130 MG/M2, BID
     Route: 048
  3. OXALIPLATIN. [Suspect]
     Active Substance: OXALIPLATIN
     Dosage: 130 MG/M2, BID
     Route: 048
     Dates: start: 201501
  4. BEVACIZUMAB [Suspect]
     Active Substance: BEVACIZUMAB
     Dosage: 7.5 MG/KG, QD
     Route: 065
     Dates: start: 201501
  5. CAPECITABINE. [Suspect]
     Active Substance: CAPECITABINE
     Dosage: 1000 MG/M2, BID
     Route: 048
     Dates: start: 201501
  6. CAPECITABINE. [Suspect]
     Active Substance: CAPECITABINE
     Indication: RECTAL ADENOCARCINOMA
     Dosage: 1000 MG/M2, BID
     Route: 048

REACTIONS (7)
  - Hypoaesthesia [Unknown]
  - Asthenia [Unknown]
  - Muscular weakness [Unknown]
  - Gastrointestinal toxicity [Unknown]
  - Hypersensitivity [Unknown]
  - Haematotoxicity [Unknown]
  - Fatigue [Unknown]
